FAERS Safety Report 8773779 (Version 1)
Quarter: 2012Q4

REPORT INFORMATION
  Report Type: 
  Country: US (occurrence: US)
  Receive Date: 20120907
  Receipt Date: 20120907
  Transmission Date: 20130627
  Serious: Yes (Hospitalization)
  Sender: FDA-Public Use
  Company Number: US-B.I. PHARMACEUTICALS,INC./RIDGEFIELD-2012-BP-22200BP

PATIENT
  Age: 73 None
  Sex: Male

DRUGS (3)
  1. SPIRIVA [Suspect]
     Indication: CHRONIC OBSTRUCTIVE PULMONARY DISEASE
     Dosage: 18 mcg
     Route: 055
     Dates: start: 2007
  2. SPIRIVA [Suspect]
     Dosage: 18 mcg
     Route: 048
     Dates: start: 20120831, end: 20120831
  3. ADVAIR [Concomitant]
     Indication: CHRONIC OBSTRUCTIVE PULMONARY DISEASE
     Route: 055
     Dates: start: 2007

REACTIONS (5)
  - Dyspnoea [Recovered/Resolved]
  - Abdominal pain upper [Not Recovered/Not Resolved]
  - Disturbance in attention [Not Recovered/Not Resolved]
  - Glossodynia [Not Recovered/Not Resolved]
  - Incorrect route of drug administration [Recovered/Resolved]
